FAERS Safety Report 24386739 (Version 1)
Quarter: 2024Q4

REPORT INFORMATION
  Report Type: Spontaneous
  Country: ES (occurrence: ES)
  Receive Date: 20241002
  Receipt Date: 20241002
  Transmission Date: 20250115
  Serious: Yes (Hospitalization, Other)
  Sender: JAZZ
  Company Number: ES-JAZZ PHARMACEUTICALS-2024-ES-016629

PATIENT

DRUGS (1)
  1. VYXEOS [Suspect]
     Active Substance: CYTARABINE\DAUNORUBICIN
     Indication: Acute myeloid leukaemia
     Dosage: 1 DOSAGE FORM
     Route: 017
     Dates: start: 20240224

REACTIONS (3)
  - Urticaria [Recovered/Resolved]
  - Pseudomonal bacteraemia [Recovered/Resolved]
  - Pyrexia [Unknown]

NARRATIVE: CASE EVENT DATE: 20240301
